FAERS Safety Report 20177669 (Version 1)
Quarter: 2021Q4

REPORT INFORMATION
  Report Type: Spontaneous
  Country: JP (occurrence: JP)
  Receive Date: 20211213
  Receipt Date: 20211213
  Transmission Date: 20220303
  Serious: Yes (Hospitalization, Other)
  Sender: FDA-Public Use
  Company Number: JP-BRISTOL-MYERS SQUIBB COMPANY-BMS-2021-132527

PATIENT
  Age: 79 Year
  Sex: Male

DRUGS (1)
  1. HYDREA [Suspect]
     Active Substance: HYDROXYUREA
     Indication: Myeloproliferative neoplasm
     Dosage: UNAVAILABLE
     Route: 048

REACTIONS (3)
  - Mental disorder [Unknown]
  - Anaemia macrocytic [Unknown]
  - Blood folate decreased [Unknown]
